FAERS Safety Report 7808426-0 (Version None)
Quarter: 2011Q4

REPORT INFORMATION
  Report Type: 
  Country: None (occurrence: None)
  Receive Date: 20111007
  Receipt Date: 20110922
  Transmission Date: 20120403
  Serious: Yes (Congenital Anomaly, Other)
  Sender: FDA-Public Use
  Company Number: 1000024352

PATIENT
  Sex: Male
  Weight: 4.17 kg

DRUGS (2)
  1. CITALOPRAM HYDROBROMIDE [Suspect]
     Dosage: 20 MG (20 MG, 1 IN 1 D), TRANSPLACENTAL, 20 MG (20 MG, 1 IN 1 D), TRANSMAMMARY
     Route: 064
     Dates: end: 20110621
  2. CITALOPRAM HYDROBROMIDE [Suspect]
     Dosage: 20 MG (20 MG, 1 IN 1 D), TRANSPLACENTAL, 20 MG (20 MG, 1 IN 1 D), TRANSMAMMARY
     Route: 064
     Dates: start: 20110621, end: 20110630

REACTIONS (4)
  - FORCEPS DELIVERY [None]
  - MATERNAL DRUGS AFFECTING FOETUS [None]
  - HYPOSPADIAS [None]
  - EXPOSURE DURING BREAST FEEDING [None]
